FAERS Safety Report 17127174 (Version 4)
Quarter: 2020Q1

REPORT INFORMATION
  Report Type: Report from Study
  Country: US (occurrence: US)
  Receive Date: 20191209
  Receipt Date: 20200305
  Transmission Date: 20200409
  Serious: No
  Sender: FDA-Public Use
  Company Number: NVSC2019US061232

PATIENT
  Age: 77 Year
  Sex: Female
  Weight: 129 kg

DRUGS (1)
  1. ENTRESTO [Suspect]
     Active Substance: SACUBITRIL\VALSARTAN
     Indication: CARDIAC FAILURE CHRONIC
     Dosage: 0.5 DF (49/51 MG), BID
     Route: 048
     Dates: start: 201911

REACTIONS (7)
  - Dizziness [Unknown]
  - Dyspnoea [Recovering/Resolving]
  - Product prescribing error [Unknown]
  - Weight increased [Unknown]
  - Wrong technique in product usage process [Unknown]
  - Increased appetite [Unknown]
  - Joint swelling [Unknown]

NARRATIVE: CASE EVENT DATE: 20191216
